FAERS Safety Report 14531791 (Version 6)
Quarter: 2018Q4

REPORT INFORMATION
  Report Type: Report from Study
  Country: BE (occurrence: BE)
  Receive Date: 20180214
  Receipt Date: 20181211
  Transmission Date: 20190204
  Serious: Yes (Other)
  Sender: FDA-Public Use
  Company Number: PHHY2015BE003368

PATIENT
  Age: 31 Year
  Sex: Male

DRUGS (2)
  1. TRADONAL [Concomitant]
     Active Substance: TRAMADOL HYDROCHLORIDE
     Indication: PRODUCT USED FOR UNKNOWN INDICATION
     Dosage: 50 MG, TID
     Route: 065
  2. GILENYA [Suspect]
     Active Substance: FINGOLIMOD HYDROCHLORIDE
     Indication: MULTIPLE SCLEROSIS
     Dosage: UNK, QD
     Route: 048
     Dates: start: 20130228, end: 201412

REACTIONS (9)
  - Arthralgia [Unknown]
  - Basedow^s disease [Recovered/Resolved]
  - Ocular hyperaemia [Recovered/Resolved]
  - Constipation [Unknown]
  - Hyperthyroidism [Recovered/Resolved]
  - Blood alkaline phosphatase increased [Unknown]
  - Lymphocyte count decreased [Recovered/Resolved]
  - Back pain [Unknown]
  - Depression [Recovered/Resolved]

NARRATIVE: CASE EVENT DATE: 20141013
